FAERS Safety Report 7019811-1 (Version None)
Quarter: 2010Q3

REPORT INFORMATION
  Report Type: 
  Country: None (occurrence: None)
  Receive Date: 20100929
  Receipt Date: 20100921
  Transmission Date: 20110219
  Serious: Yes (Hospitalization)
  Sender: FDA-Public Use
  Company Number: US-ELI_LILLY_AND_COMPANY-US201006001974

PATIENT
  Sex: Female

DRUGS (26)
  1. GEMCITABINE HCL [Suspect]
     Indication: PANCREATIC CARCINOMA
     Dosage: 1000 MG/M2, OTHER
     Route: 042
     Dates: start: 20100416
  2. PACLITAXEL [Suspect]
     Indication: PANCREATIC CARCINOMA
     Dosage: 125 MG/M2, OTHER
     Route: 042
     Dates: start: 20100416
  3. PERCOCET [Concomitant]
  4. SENOKOT [Concomitant]
  5. LACTULOSE [Concomitant]
  6. DILTIAZEM [Concomitant]
     Indication: HYPERTENSION
  7. VALSARTAN [Concomitant]
     Indication: HYPERTENSION
     Dates: start: 20030101
  8. AMBIEN [Concomitant]
     Indication: INSOMNIA
     Dates: start: 20000101
  9. OXYCONTIN [Concomitant]
     Indication: PAIN
     Dates: start: 20100409
  10. VALIUM [Concomitant]
     Indication: ANXIETY
     Dates: start: 20000101
  11. XANAX [Concomitant]
     Indication: ANXIETY
     Dates: start: 20000101
  12. COMPAZINE [Concomitant]
     Indication: NAUSEA
     Dates: start: 20100419
  13. LOVENOX [Concomitant]
     Indication: PROPHYLAXIS
     Dates: start: 20100419
  14. ALOXI [Concomitant]
     Dates: start: 20100416
  15. TYLENOL                                 /SCH/ [Concomitant]
     Dates: start: 20100416
  16. ATARAX [Concomitant]
     Indication: RASH ERYTHEMATOUS
     Dates: start: 20100517
  17. HYDROCORTISONE [Concomitant]
     Indication: PRURITUS
     Route: 061
     Dates: start: 20100517
  18. ARANESP [Concomitant]
     Indication: PROPHYLAXIS
     Route: 058
     Dates: start: 20100507
  19. ZITHROMAX [Concomitant]
     Indication: PHARYNGITIS
     Dates: start: 20100517
  20. MEGACE [Concomitant]
     Route: 048
     Dates: start: 20100506
  21. ZYRTEC [Concomitant]
     Indication: PROPHYLAXIS
     Route: 048
     Dates: start: 20100520
  22. BENADRYL [Concomitant]
     Indication: PROPHYLAXIS
     Route: 048
     Dates: start: 20100520
  23. CARAFATE [Concomitant]
     Indication: MUCOSAL INFLAMMATION
     Dates: start: 20100520
  24. DIFLUCAN [Concomitant]
     Indication: MUCOSAL INFLAMMATION
     Route: 048
     Dates: start: 20100520, end: 20100528
  25. VALTREX [Concomitant]
     Indication: MUCOSAL INFLAMMATION
  26. MEDROL [Concomitant]
     Indication: RASH

REACTIONS (1)
  - CONSTIPATION [None]
